FAERS Safety Report 6265184-1 (Version None)
Quarter: 2009Q3

REPORT INFORMATION
  Report Type: 
  Country: None (occurrence: None)
  Receive Date: 20090713
  Receipt Date: 20090702
  Transmission Date: 20100115
  Serious: Yes (Life-Threatening, Hospitalization)
  Sender: FDA-Public Use
  Company Number: FR-JNJFOC-20090701460

PATIENT
  Age: 79 Year
  Sex: Female

DRUGS (10)
  1. REMICADE [Suspect]
     Indication: RHEUMATOID ARTHRITIS
     Dosage: 3RD INFUSION OF 2ND CYCLE (8 INFUSIONS IN TOTAL)
     Route: 042
  2. REMICADE [Suspect]
     Indication: URINARY TRACT INFLAMMATION
     Dosage: FIRST 5 INFUSIONS
     Route: 042
  3. CORTANCYL [Concomitant]
     Route: 048
  4. IXPRIM [Concomitant]
     Indication: PAIN
     Route: 048
  5. CONTRAMAL [Concomitant]
     Indication: PAIN
     Route: 048
  6. MOPRAL [Concomitant]
     Indication: GASTROOESOPHAGEAL REFLUX DISEASE
     Route: 048
  7. LEVOTHYROX [Concomitant]
     Indication: HYPOTHYROIDISM
     Route: 048
  8. LASIX [Concomitant]
     Indication: OEDEMA
     Route: 048
  9. MICROKALEORID [Concomitant]
     Indication: HYPOKALAEMIA
     Route: 048
  10. KARDEGIC [Concomitant]
     Route: 048

REACTIONS (10)
  - ARTHRALGIA [None]
  - CARDIAC FAILURE [None]
  - DIARRHOEA [None]
  - DYSPNOEA [None]
  - HEADACHE [None]
  - HYPERSENSITIVITY [None]
  - HYPOTENSION [None]
  - OEDEMA PERIPHERAL [None]
  - PYREXIA [None]
  - RENAL FAILURE [None]
